FAERS Safety Report 7524806-5 (Version None)
Quarter: 2011Q2

REPORT INFORMATION
  Report Type: 
  Country: None (occurrence: None)
  Receive Date: 20110606
  Receipt Date: 20110602
  Transmission Date: 20111010
  Serious: No
  Sender: FDA-Public Use
  Company Number: US-PFIZER INC-2011119976

PATIENT
  Sex: Male
  Weight: 84.807 kg

DRUGS (6)
  1. IPRATROPIUM BROMIDE AND ALBUTEROL SULFATE [Concomitant]
     Indication: CHRONIC OBSTRUCTIVE PULMONARY DISEASE
     Dosage: UNK
  2. ADVIL [Suspect]
     Indication: NASOPHARYNGITIS
     Dosage: UNK
     Route: 048
     Dates: start: 20110501, end: 20110531
  3. AZATHIOPRINE [Concomitant]
     Indication: COLITIS ULCERATIVE
     Dosage: UNK
  4. LIPITOR [Concomitant]
     Dosage: UNK
     Route: 048
  5. BENICAR [Concomitant]
     Indication: BLOOD PRESSURE ABNORMAL
     Dosage: UNK
     Route: 048
  6. ATENOLOL [Concomitant]
     Dosage: UNK
     Route: 048

REACTIONS (1)
  - PRURITUS GENERALISED [None]
